FAERS Safety Report 7098880-7 (Version None)
Quarter: 2010Q4

REPORT INFORMATION
  Report Type: 
  Country: None (occurrence: None)
  Receive Date: 20101112
  Receipt Date: 20101108
  Transmission Date: 20110411
  Serious: Yes (Other)
  Sender: FDA-Public Use
  Company Number: FR-PFIZER INC-2010142538

PATIENT
  Age: 30 Year
  Sex: Male

DRUGS (2)
  1. SALAZOPYRINE [Suspect]
     Indication: BACK PAIN
     Dosage: 2 DF, 2X/DAY
  2. SALAZOPYRINE [Suspect]
     Indication: ANKYLOSING SPONDYLITIS

REACTIONS (2)
  - ANAEMIA [None]
  - HAEMORRHAGE [None]
